FAERS Safety Report 9281380 (Version 3)
Quarter: 2013Q2

REPORT INFORMATION
  Report Type: Report from Study
  Country: US (occurrence: US)
  Receive Date: 20130509
  Receipt Date: 20130624
  Transmission Date: 20140414
  Serious: Yes (Hospitalization, Other)
  Sender: FDA-Public Use
  Company Number: US-ABBOTT-13P-163-1077270-00

PATIENT
  Age: 65 Year
  Sex: Male
  Weight: 99.88 kg

DRUGS (35)
  1. HUMIRA [Suspect]
     Indication: COLITIS ULCERATIVE
     Dates: start: 2012, end: 201205
  2. HUMIRA [Suspect]
     Dates: start: 201304, end: 201305
  3. XANAX [Concomitant]
     Indication: ANXIETY
  4. AMLODIPINE [Concomitant]
     Indication: CARDIAC DISORDER
     Dosage: 5MG DAILY
  5. COZAAR [Concomitant]
     Indication: CARDIAC DISORDER
  6. LUNESTA [Concomitant]
     Indication: SLEEP DISORDER THERAPY
     Dosage: DAILY AT BEDTIME
  7. ZOCOR [Concomitant]
     Indication: BLOOD CHOLESTEROL INCREASED
     Dosage: 40MG DAILY
  8. DYCLYCLOMINE [Concomitant]
     Indication: GASTRIC DISORDER
     Dosage: DAILY
  9. LASIX [Concomitant]
     Indication: FLUID RETENTION
     Dosage: 20MG DAILY
  10. LASIX [Concomitant]
     Dosage: 20 MG - 1/2 TAB
  11. LEVSIN [Concomitant]
     Indication: GASTRIC DISORDER
     Route: 060
  12. LOMOTIL [Concomitant]
     Indication: DIARRHOEA
  13. BUPROPION HCL [Concomitant]
     Indication: PRODUCT USED FOR UNKNOWN INDICATION
     Dosage: 100MG DAILY
  14. BUPROPION HCL [Concomitant]
     Dosage: 100 MG - 1/2 TAB DAILY
  15. DEXILANT [Concomitant]
     Indication: GASTROOESOPHAGEAL REFLUX DISEASE
     Dosage: 60MG DAILY
  16. FINASTERIDE [Concomitant]
     Indication: PRODUCT USED FOR UNKNOWN INDICATION
  17. FINASTERIDE [Concomitant]
     Dosage: 1/2 TABLET DAILY
  18. ISOSORBIDE MONONITRATE [Concomitant]
     Indication: BLOOD PRESSURE
     Dosage: 30MG DAILY
  19. POTASSIUM CHLORIDE [Concomitant]
     Indication: MINERAL SUPPLEMENTATION
     Dosage: DAILY
  20. VITAMIN D [Concomitant]
     Indication: VITAMIN SUPPLEMENTATION
     Dosage: DAILY
  21. ASPIRIN [Concomitant]
     Indication: PRODUCT USED FOR UNKNOWN INDICATION
     Dosage: 81 MG DAILY
  22. NORVASC [Concomitant]
     Indication: PRODUCT USED FOR UNKNOWN INDICATION
     Dosage: 5 MG DAILY
  23. AZATHIOPRINE [Concomitant]
     Indication: PRODUCT USED FOR UNKNOWN INDICATION
     Dosage: 50 MG - 2 TABLETS DAILY
  24. BENADRYL [Concomitant]
     Indication: PRODUCT USED FOR UNKNOWN INDICATION
  25. B12 [Concomitant]
     Indication: PRODUCT USED FOR UNKNOWN INDICATION
     Dosage: 1000 MCG - 1/2 TABLET DAILY
  26. ENTOCORT [Concomitant]
     Indication: PRODUCT USED FOR UNKNOWN INDICATION
     Dosage: 3 MG DAILY
  27. HYDROCORTISONE [Concomitant]
     Indication: PRODUCT USED FOR UNKNOWN INDICATION
     Dosage: 100 MG / 60 ML
  28. HYOSCYAMINE [Concomitant]
     Indication: PRODUCT USED FOR UNKNOWN INDICATION
     Dosage: AS NEEDED
  29. ISOSORBIDE DINITRATE [Concomitant]
     Indication: PRODUCT USED FOR UNKNOWN INDICATION
     Dosage: 30 MG DAILY
  30. LOSARTAN [Concomitant]
     Indication: PRODUCT USED FOR UNKNOWN INDICATION
  31. MULTIVITAMIN [Concomitant]
     Indication: PRODUCT USED FOR UNKNOWN INDICATION
     Dosage: DAILY
  32. OSTEOBIOFLEX [Concomitant]
     Indication: PRODUCT USED FOR UNKNOWN INDICATION
  33. POTASSIUM [Concomitant]
     Indication: PRODUCT USED FOR UNKNOWN INDICATION
     Dosage: 20 MEQ 1/2 TAB
  34. TYLENOL [Concomitant]
     Indication: PRODUCT USED FOR UNKNOWN INDICATION
     Dosage: 325 MG - 2 TAB
  35. CHLORTHALIDONE [Concomitant]
     Indication: PRODUCT USED FOR UNKNOWN INDICATION
     Dosage: 20 MG DAILY

REACTIONS (11)
  - Crohn^s disease [Not Recovered/Not Resolved]
  - Colitis ulcerative [Unknown]
  - Weight decreased [Unknown]
  - Abdominal pain [Not Recovered/Not Resolved]
  - Diarrhoea [Not Recovered/Not Resolved]
  - Malaise [Unknown]
  - Colitis [Not Recovered/Not Resolved]
  - Drug effect incomplete [Not Recovered/Not Resolved]
  - Asthenia [Unknown]
  - Balance disorder [Unknown]
  - Tremor [Unknown]
